FAERS Safety Report 7378346-7 (Version None)
Quarter: 2011Q1

REPORT INFORMATION
  Report Type: 
  Country: None (occurrence: None)
  Receive Date: 20110323
  Receipt Date: 20110323
  Transmission Date: 20110831
  Serious: No
  Sender: FDA-Public Use
  Company Number: None

PATIENT
  Sex: Female
  Weight: 128.368 kg

DRUGS (1)
  1. DILTIAZEM [Suspect]
     Indication: HYPERTENSION
     Dosage: 120MG QS ORAL
     Route: 048

REACTIONS (2)
  - TACHYCARDIA [None]
  - HYPERTENSION [None]
